FAERS Safety Report 9407198 (Version 4)
Quarter: 2013Q3

REPORT INFORMATION
  Report Type: Spontaneous
  Country: US (occurrence: US)
  Receive Date: 20130718
  Receipt Date: 20130909
  Transmission Date: 20140515
  Serious: Yes (Other)
  Sender: FDA-Public Use
  Company Number: US-PFIZER INC-2013208305

PATIENT
  Age: 66 Year
  Sex: Female
  Weight: 127 kg

DRUGS (2)
  1. ADVIL [Suspect]
     Indication: ARTHRALGIA
     Dosage: 800 MG (4 TABLETS OF 200MG), AS NEEDED
     Route: 048
  2. ADVIL [Suspect]
     Dosage: UNK

REACTIONS (7)
  - White blood cell count increased [Unknown]
  - Weight fluctuation [Unknown]
  - Pyrexia [Unknown]
  - Headache [Not Recovered/Not Resolved]
  - Bronchitis [Unknown]
  - Pain [Unknown]
  - Upper respiratory tract infection [Unknown]
